FAERS Safety Report 5001914-4 (Version None)
Quarter: 2006Q2

REPORT INFORMATION
  Report Type: 
  Country: None (occurrence: None)
  Receive Date: 20060515
  Receipt Date: 20050818
  Transmission Date: 20061013
  Serious: Yes (Hospitalization, Other)
  Sender: FDA-Public Use
  Company Number: CA-MERCK-0508CAN00166

PATIENT
  Age: 64 Year
  Sex: Female
  Weight: 70 kg

DRUGS (5)
  1. VIOXX [Suspect]
     Indication: ARTHRITIS
     Route: 048
     Dates: start: 20030606, end: 20030812
  2. METOPROLOL [Concomitant]
     Indication: BLOOD PRESSURE
     Route: 065
     Dates: start: 19840101
  3. ASPIRIN [Concomitant]
     Indication: CARDIAC DISORDER
     Route: 065
  4. DIGOXIN [Concomitant]
     Indication: CARDIAC DISORDER
     Route: 065
  5. ACETAMINOPHEN [Concomitant]
     Indication: PAIN
     Route: 065

REACTIONS (4)
  - CEREBROVASCULAR ACCIDENT [None]
  - DEPRESSION [None]
  - HYPOACUSIS [None]
  - POST-TRAUMATIC STRESS DISORDER [None]
